FAERS Safety Report 10137700 (Version 1)
Quarter: 2014Q2

REPORT INFORMATION
  Report Type: Spontaneous
  Country: US (occurrence: None)
  Receive Date: 20140428
  Receipt Date: 20140428
  Transmission Date: 20141212
  Serious: Yes (Life-Threatening, Hospitalization)
  Sender: FDA-Public Use
  Company Number: None

PATIENT
  Age: 63 Year
  Sex: Female
  Weight: 77.11 kg

DRUGS (2)
  1. PERJETA [Suspect]
     Indication: HER-2 POSITIVE BREAST CANCER
     Dosage: 1X EVERY 3 WKS. INTO A VEIN.
  2. PERJETA [Suspect]
     Indication: BREAST CANCER STAGE IV
     Dosage: 1X EVERY 3 WKS. INTO A VEIN.

REACTIONS (2)
  - Anaphylactic reaction [None]
  - Aspiration [None]
